FAERS Safety Report 24796550 (Version 1)
Quarter: 2025Q1

REPORT INFORMATION
  Report Type: Spontaneous
  Country: US (occurrence: US)
  Receive Date: 20250101
  Receipt Date: 20250101
  Transmission Date: 20250409
  Serious: Yes (Other)
  Sender: ALEXION PHARMACEUTICALS
  Company Number: US-ASTRAZENECA-202412USA022805US

PATIENT
  Age: 64 Year

DRUGS (12)
  1. FARXIGA [Suspect]
     Active Substance: DAPAGLIFLOZIN PROPANEDIOL
     Route: 065
  2. FARXIGA [Suspect]
     Active Substance: DAPAGLIFLOZIN PROPANEDIOL
     Route: 065
  3. FARXIGA [Suspect]
     Active Substance: DAPAGLIFLOZIN PROPANEDIOL
     Route: 065
  4. FARXIGA [Suspect]
     Active Substance: DAPAGLIFLOZIN PROPANEDIOL
     Route: 065
  5. ROSUVASTATIN [Suspect]
     Active Substance: ROSUVASTATIN
     Route: 065
  6. ROSUVASTATIN [Suspect]
     Active Substance: ROSUVASTATIN
     Route: 065
  7. ENTRESTO [Suspect]
     Active Substance: SACUBITRIL\VALSARTAN
     Route: 065
  8. ENTRESTO [Suspect]
     Active Substance: SACUBITRIL\VALSARTAN
     Route: 065
  9. CARVEDILOL [Suspect]
     Active Substance: CARVEDILOL
     Route: 065
  10. CARVEDILOL [Suspect]
     Active Substance: CARVEDILOL
     Route: 065
  11. LATANOPROST [Suspect]
     Active Substance: LATANOPROST
     Route: 048
  12. LATANOPROST [Suspect]
     Active Substance: LATANOPROST

REACTIONS (8)
  - Cardiomyopathy [Unknown]
  - Glaucoma [Unknown]
  - Somnolence [Unknown]
  - Sleep apnoea syndrome [Unknown]
  - Hepatic lesion [Unknown]
  - Fatigue [Unknown]
  - Insomnia [Unknown]
  - Ejection fraction abnormal [Unknown]
